FAERS Safety Report 7617944-X (Version None)
Quarter: 2011Q3

REPORT INFORMATION
  Report Type: 
  Country: None (occurrence: None)
  Receive Date: 20110718
  Receipt Date: 20110705
  Transmission Date: 20111222
  Serious: Yes (Other)
  Sender: FDA-Public Use
  Company Number: PHHY2011US55588

PATIENT
  Sex: Female

DRUGS (2)
  1. EXJADE [Suspect]
     Dosage: 250 MG, QD
     Route: 048
  2. PENICILLIN NOS [Concomitant]
     Dosage: UNK UKN, BID
     Route: 048

REACTIONS (2)
  - GLOSSODYNIA [None]
  - HAND-FOOT-AND-MOUTH DISEASE [None]
